FAERS Safety Report 6083455-9 (Version None)
Quarter: 2009Q1

REPORT INFORMATION
  Report Type: 
  Country: None (occurrence: None)
  Receive Date: 20090219
  Receipt Date: 20090209
  Transmission Date: 20090719
  Serious: Yes (Hospitalization)
  Sender: FDA-Public Use
  Company Number: BR-BIOGENIDEC-2009BI002629

PATIENT
  Age: 46 Year
  Sex: Female

DRUGS (3)
  1. AVONEX [Suspect]
     Indication: MULTIPLE SCLEROSIS
     Route: 030
     Dates: start: 20081201, end: 20090127
  2. RIVOTRIL [Concomitant]
     Indication: ARRHYTHMIA
     Route: 048
     Dates: start: 20040101
  3. ANTIDEPRESSIVE [Concomitant]
     Indication: DRUG USE FOR UNKNOWN INDICATION

REACTIONS (15)
  - CENTRAL NERVOUS SYSTEM LESION [None]
  - CONSTIPATION [None]
  - DEPRESSED MOOD [None]
  - DIPLOPIA [None]
  - DYSURIA [None]
  - GAIT DISTURBANCE [None]
  - HYPERSENSITIVITY [None]
  - LOSS OF CONTROL OF LEGS [None]
  - MEMORY IMPAIRMENT [None]
  - MOBILITY DECREASED [None]
  - OEDEMA PERIPHERAL [None]
  - PYREXIA [None]
  - SENSATION OF HEAVINESS [None]
  - STRABISMUS [None]
  - TRANSAMINASES INCREASED [None]
